FAERS Safety Report 5397206-4 (Version None)
Quarter: 2007Q3

REPORT INFORMATION
  Report Type: 
  Country: None (occurrence: None)
  Receive Date: 20070725
  Receipt Date: 20070713
  Transmission Date: 20080115
  Serious: Yes (Other)
  Sender: FDA-Public Use
  Company Number: GB-PFIZER INC-2007058908

PATIENT
  Age: 67 Year
  Sex: Female

DRUGS (2)
  1. CABASER [Suspect]
     Indication: PARKINSON'S DISEASE
     Route: 048
  2. DICLOFENAC SODIUM [Concomitant]
     Route: 048

REACTIONS (4)
  - AORTIC VALVE INCOMPETENCE [None]
  - CARDIAC MURMUR [None]
  - DYSPNOEA [None]
  - MITRAL VALVE INCOMPETENCE [None]
